FAERS Safety Report 10622256 (Version 1)
Quarter: 2014Q4

REPORT INFORMATION
  Report Type: Spontaneous
  Country: US (occurrence: None)
  Receive Date: 20141202
  Receipt Date: 20141202
  Transmission Date: 20150529
  Serious: Yes (Life-Threatening)
  Sender: FDA-Public Use
  Company Number: None

PATIENT
  Age: 77 Year
  Sex: Male
  Weight: 77.11 kg

DRUGS (24)
  1. OXYCODONE-ACETAMINOPHEN [Concomitant]
     Active Substance: ACETAMINOPHEN\OXYCODONE HYDROCHLORIDE
  2. RIVAROXABAN [Suspect]
     Active Substance: RIVAROXABAN
     Indication: THROMBOSIS PROPHYLAXIS
     Dosage: 1 TABLET QD PO
     Route: 048
     Dates: start: 20140223, end: 20141129
  3. ASPIRIN. [Concomitant]
     Active Substance: ASPIRIN
  4. OMEPRAZOLE (PRILOSEC) [Concomitant]
  5. COMPLEX VITAMINS [Concomitant]
  6. CHOLECALCIFEROL [Concomitant]
     Active Substance: CHOLECALCIFEROL
  7. RIVAROXABAN (XARELTO) [Concomitant]
  8. ACLIDINIUM BROMDE [Concomitant]
  9. CARVEDILOL (COREG) [Concomitant]
  10. VITAMIN D3 [Concomitant]
     Active Substance: CHOLECALCIFEROL
  11. DIGOXIN (LANOXIN) [Concomitant]
  12. BUDESONIDE/FORMOTEROL FUMARATE [Concomitant]
     Active Substance: BUDESONIDE\FORMOTEROL
  13. CETIRIZINE (ZYRTEC) [Concomitant]
  14. TEMAZEPAM (RESTORIL) [Concomitant]
  15. ATORVASTATIN (LIPITOR) [Concomitant]
  16. CALCIUM CARBONATE-VITAMIN D3 [Concomitant]
  17. CITALOPRAM [Concomitant]
     Active Substance: CITALOPRAM HYDROBROMIDE
  18. FOLIC ACID (FOLVETE) [Concomitant]
  19. REMERON [Concomitant]
     Active Substance: MIRTAZAPINE
  20. MULTIVITAMIN (THERAGRAN) [Concomitant]
  21. FUROSEMIDE (LASIX) [Concomitant]
  22. HYDROCODONE ACETAMINOPHEN [Concomitant]
     Active Substance: ACETAMINOPHEN\HYDROCODONE BITARTRATE
  23. LACTOB CMB ##/FOS/PANTHETHINE [Concomitant]
  24. POTASSIUM CHLORIDE SA (K-DUR, GLOR-CON) [Concomitant]

REACTIONS (6)
  - Anaemia [None]
  - Syncope [None]
  - Intra-abdominal haemorrhage [None]
  - Abdominal pain [None]
  - Colostomy [None]
  - Hypotension [None]

NARRATIVE: CASE EVENT DATE: 20141129
